FAERS Safety Report 4630199-3 (Version None)
Quarter: 2005Q2

REPORT INFORMATION
  Report Type: 
  Country: None (occurrence: None)
  Receive Date: 20050408
  Receipt Date: 20050329
  Transmission Date: 20051028
  Serious: Yes (Other)
  Sender: FDA-Public Use
  Company Number: US-JNJFOC-20041102261

PATIENT
  Sex: Female
  Weight: 56.25 kg

DRUGS (8)
  1. REMICADE [Suspect]
     Route: 042
     Dates: start: 20020101, end: 20040501
  2. REMICADE [Suspect]
     Indication: CROHN'S DISEASE
     Route: 042
     Dates: start: 20020101, end: 20040501
  3. PREDNISONE [Concomitant]
  4. FOLIC ACID [Concomitant]
  5. NEURONTIN [Concomitant]
  6. NEXIUM [Concomitant]
  7. PREDNISONE [Concomitant]
  8. PROCRIT [Concomitant]

REACTIONS (2)
  - ANAEMIA OF CHRONIC DISEASE [None]
  - IRON METABOLISM DISORDER [None]
